FAERS Safety Report 9543328 (Version 2)
Quarter: 2015Q2

REPORT INFORMATION
  Report Type: Spontaneous
  Country: GB (occurrence: GB)
  Receive Date: 20130923
  Receipt Date: 20150417
  Transmission Date: 20150821
  Serious: Yes (Death, Hospitalization)
  Sender: FDA-Public Use
  Company Number: GB-TEVA-433135ISR

PATIENT
  Age: 69 Year
  Sex: Female
  Weight: 120 kg

DRUGS (18)
  1. RABEPRAZOLE [Concomitant]
     Active Substance: RABEPRAZOLE
  2. BISOPROLOL [Concomitant]
     Active Substance: BISOPROLOL
  3. DIGOXIN. [Concomitant]
     Active Substance: DIGOXIN
  4. MOVELAT [Concomitant]
  5. PARACETAMOL [Concomitant]
     Active Substance: ACETAMINOPHEN
  6. WARFARIN [Concomitant]
     Active Substance: WARFARIN
  7. CETIRIZINE [Concomitant]
     Active Substance: CETIRIZINE HYDROCHLORIDE
  8. DIHYDROCODEINE [Concomitant]
     Active Substance: DIHYDROCODEINE
  9. LEVOTHYROXINE [Concomitant]
     Active Substance: LEVOTHYROXINE
  10. SERTRALINE [Suspect]
     Active Substance: SERTRALINE HYDROCHLORIDE
     Indication: DEPRESSION
     Route: 048
     Dates: start: 20130802, end: 20130818
  11. SENNA [Concomitant]
     Active Substance: SENNA LEAF\SENNOSIDES\SENNOSIDES A AND B
  12. LACTULOSE. [Concomitant]
     Active Substance: LACTULOSE
  13. PREDNISOLONE. [Concomitant]
     Active Substance: PREDNISOLONE
  14. METHOTREXATE [Concomitant]
     Active Substance: METHOTREXATE
  15. FERROUS FUMARATE [Concomitant]
     Active Substance: FERROUS FUMARATE
  16. FOLIC ACID. [Concomitant]
     Active Substance: FOLIC ACID
  17. DOCUSATE [Concomitant]
     Active Substance: DOCUSATE
  18. SIMVASTATIN. [Concomitant]
     Active Substance: SIMVASTATIN

REACTIONS (8)
  - Cardiovascular disorder [Unknown]
  - Atrial fibrillation [Unknown]
  - Lower respiratory tract infection [Unknown]
  - Toxic epidermal necrolysis [Unknown]
  - Sepsis [Unknown]
  - Multi-organ failure [Fatal]
  - Dehydration [Unknown]
  - Rash [Unknown]

NARRATIVE: CASE EVENT DATE: 20130811
